FAERS Safety Report 7489178-3 (Version None)
Quarter: 2011Q2

REPORT INFORMATION
  Report Type: 
  Country: None (occurrence: None)
  Receive Date: 20110518
  Receipt Date: 20110511
  Transmission Date: 20111010
  Serious: Yes (Other)
  Sender: FDA-Public Use
  Company Number: US-AMGEN-USASP2011021319

PATIENT
  Age: 78 Year
  Sex: Male
  Weight: 90.794 kg

DRUGS (2)
  1. CORTICOSTEROIDS [Concomitant]
  2. NPLATE [Suspect]
     Indication: IDIOPATHIC THROMBOCYTOPENIC PURPURA
     Dosage: 270 A?G, QWK
     Route: 058
     Dates: start: 20101105, end: 20101220

REACTIONS (3)
  - RESPIRATORY DISTRESS [None]
  - DRUG INEFFECTIVE [None]
  - DYSPNOEA [None]
